FAERS Safety Report 7227712-9 (Version None)
Quarter: 2011Q1

REPORT INFORMATION
  Report Type: 
  Country: None (occurrence: None)
  Receive Date: 20110114
  Receipt Date: 20101022
  Transmission Date: 20110831
  Serious: Yes (Death, Life-Threatening, Hospitalization, Other)
  Sender: FDA-Public Use
  Company Number: PHHY2010DE68953

PATIENT
  Sex: Female
  Weight: 73 kg

DRUGS (9)
  1. XIPAMIDE [Concomitant]
     Indication: CARDIAC FAILURE
     Dosage: 20 UNK, UNK
     Route: 048
  2. MARCUMAR [Concomitant]
     Dosage: UNK
     Dates: end: 20090904
  3. SPIRONOLACTONE [Concomitant]
     Dosage: 50 MG, DAILY
     Dates: start: 20080501
  4. PANTOZOL [Concomitant]
     Dosage: 40 MG,DAILY
     Route: 048
     Dates: start: 20021101
  5. CIPRAMIL [Concomitant]
     Dosage: 20 MG, DAILY
     Route: 048
     Dates: start: 20071201
  6. CLEXANE [Concomitant]
     Dosage: 0.3 ML/DAY
     Route: 058
     Dates: start: 20090909, end: 20091105
  7. TORSEMIDE [Concomitant]
     Indication: CARDIAC FAILURE
     Dosage: 10 UNK, UNK
     Route: 048
  8. CGS 20267 [Suspect]
     Indication: BREAST CANCER
     Dosage: 2.5 MG, UNK
     Route: 048
     Dates: start: 20090301, end: 20090719
  9. ACETYLSALICYLIC ACID [Concomitant]
     Indication: CORONARY ARTERY DISEASE
     Dosage: 100 UNK, UNK
     Route: 048

REACTIONS (9)
  - CATHETER PLACEMENT [None]
  - RESPIRATORY FAILURE [None]
  - DEHYDRATION [None]
  - DYSPNOEA [None]
  - GASTROINTESTINAL HAEMORRHAGE [None]
  - CARDIAC FAILURE [None]
  - GENERAL PHYSICAL HEALTH DETERIORATION [None]
  - PULMONARY EMBOLISM [None]
  - PNEUMONIA [None]
